FAERS Safety Report 16638972 (Version 7)
Quarter: 2025Q1

REPORT INFORMATION
  Report Type: Report from Study
  Country: US (occurrence: US)
  Receive Date: 20190726
  Receipt Date: 20250307
  Transmission Date: 20250409
  Serious: Yes (Other)
  Sender: TAKEDA
  Company Number: US-SHIRE-US201923720

PATIENT
  Age: 63 Year
  Sex: Female

DRUGS (8)
  1. LANADELUMAB [Suspect]
     Active Substance: LANADELUMAB
     Indication: Hereditary angioedema
     Dosage: 300 MILLIGRAM, Q2WEEKS
     Dates: start: 20180828
  2. LANADELUMAB [Suspect]
     Active Substance: LANADELUMAB
     Indication: Immune system disorder
     Dosage: 300 MILLIGRAM, Q2WEEKS
     Dates: start: 20180919
  3. LANADELUMAB [Suspect]
     Active Substance: LANADELUMAB
     Dosage: UNK UNK, Q2WEEKS
  4. LANADELUMAB [Suspect]
     Active Substance: LANADELUMAB
     Dosage: 300 MILLIGRAM, Q2WEEKS
  5. KALBITOR [Suspect]
     Active Substance: ECALLANTIDE
     Indication: Hereditary angioedema
  6. KALBITOR [Suspect]
     Active Substance: ECALLANTIDE
  7. FIRAZYR [Suspect]
     Active Substance: ICATIBANT ACETATE
     Indication: Immune system disorder
  8. FIRAZYR [Suspect]
     Active Substance: ICATIBANT ACETATE
     Indication: Hereditary angioedema

REACTIONS (8)
  - Foot fracture [Recovering/Resolving]
  - Breast cancer [Unknown]
  - Fall [Recovering/Resolving]
  - Arthropathy [Unknown]
  - Fluid retention [Recovered/Resolved]
  - Breast calcifications [Unknown]
  - Wheezing [Recovered/Resolved]
  - Hereditary angioedema [Recovered/Resolved]

NARRATIVE: CASE EVENT DATE: 20190714
